FAERS Safety Report 16610728 (Version 1)
Quarter: 2019Q3

REPORT INFORMATION
  Report Type: Spontaneous
  Country: CA (occurrence: CA)
  Receive Date: 20190722
  Receipt Date: 20190722
  Transmission Date: 20191004
  Serious: Yes (Life-Threatening, Other)
  Sender: FDA-Public Use
  Company Number: CA-JNJFOC-20190716457

PATIENT
  Age: 57 Year
  Sex: Female
  Weight: 85 kg

DRUGS (1)
  1. RIVAROXABAN [Suspect]
     Active Substance: RIVAROXABAN
     Indication: EMBOLISM
     Route: 048

REACTIONS (6)
  - Myocarditis [Unknown]
  - Electrocardiogram QT prolonged [Unknown]
  - Alanine aminotransferase increased [Unknown]
  - Eosinophilia [Unknown]
  - Angioedema [Unknown]
  - Hypersensitivity [Unknown]
